FAERS Safety Report 9494396 (Version 2)
Quarter: 2013Q3

REPORT INFORMATION
  Report Type: Spontaneous
  Country: US (occurrence: None)
  Receive Date: 20130828
  Receipt Date: 20130912
  Transmission Date: 20140515
  Serious: Yes (Death, Other)
  Sender: FDA-Public Use
  Company Number: JPI-P-031544

PATIENT
  Age: 49 Year
  Sex: Female

DRUGS (12)
  1. XYREM (500 MILLIGRAM/MILLILITERS SOLUTION) (SODIUM OXYBATE) [Suspect]
     Indication: FIBROMYALGIA
     Dosage: 4GM (2 GM, 2 IN 1 D)
     Route: 048
     Dates: start: 20121002, end: 2012
  2. PHENELZINE (PHENELZINE) [Concomitant]
  3. ALPRAZOLAM (ALPRAZOLAM) [Concomitant]
  4. TOPIRAMATE (TOPIRAMATE) [Concomitant]
  5. PIOGLITAZONE HYDROCHLORIDE (PIOGLITAZONE HYDROCHLORIDE) [Concomitant]
  6. OXYCODONE (OXYCODONE) [Concomitant]
  7. PROMETHAZINE (PROMETHAZINE HYDROCHLORIDE) [Concomitant]
  8. DRONABINOL [Concomitant]
  9. MEMANTINE (MEMANTINE) [Concomitant]
  10. CLONAZEPAM (CLONAZEPAM) [Concomitant]
  11. BROMFENAC SODIUM (BROMFENAC SODIUM) [Concomitant]
  12. MARIJUANA (MARIJUANA) [Concomitant]

REACTIONS (7)
  - Hypertension [None]
  - Hepatic steatosis [None]
  - Toxicity to various agents [None]
  - Fall [None]
  - Depressed level of consciousness [None]
  - Asphyxia [None]
  - Somnolence [None]
